FAERS Safety Report 6058143-5 (Version None)
Quarter: 2009Q1

REPORT INFORMATION
  Report Type: 
  Country: None (occurrence: None)
  Receive Date: 20090127
  Receipt Date: 20090113
  Transmission Date: 20090719
  Serious: Yes (Death, Hospitalization)
  Sender: FDA-Public Use
  Company Number: 2008003278

PATIENT
  Age: 81 Year
  Sex: Male

DRUGS (11)
  1. ERLOTINIB / PLACEBO(ERLOTINIB HCI) (TABLET) (ERLOTINIB HCI) [Suspect]
     Indication: LUNG NEOPLASM MALIGNANT
     Dosage: (150 MG), ORAL
     Route: 048
     Dates: start: 20081108, end: 20081204
  2. SIMVASTATIN [Concomitant]
  3. RAMIPRIL [Concomitant]
  4. DIGOXIN [Concomitant]
  5. FUROSEMIDE (FUROSEMIDE) [Concomitant]
  6. SPIRONOLACTONE [Concomitant]
  7. CLOPIDOGREL [Concomitant]
  8. ASPIRIN [Concomitant]
  9. CARVEDILOL [Concomitant]
  10. SERETIDE (SERETIDE) [Concomitant]
  11. GTN (GLYCERYL TRINITRATE) [Concomitant]

REACTIONS (4)
  - DEHYDRATION [None]
  - FALL [None]
  - LETHARGY [None]
  - LUNG NEOPLASM MALIGNANT [None]
